FAERS Safety Report 13967232 (Version 1)
Quarter: 2017Q3

REPORT INFORMATION
  Report Type: Report from Study
  Country: None (occurrence: US)
  Receive Date: 20170914
  Receipt Date: 20170914
  Transmission Date: 20171128
  Serious: Yes (Hospitalization)
  Sender: FDA-Public Use
  Company Number: US-ABBVIE-16K-163-1824887-00

PATIENT
  Age: 35 Year
  Sex: Female

DRUGS (2)
  1. HUMIRA [Suspect]
     Active Substance: ADALIMUMAB
     Indication: PSORIATIC ARTHROPATHY
     Route: 058
     Dates: start: 20161216, end: 20170622
  2. HUMIRA [Suspect]
     Active Substance: ADALIMUMAB
     Indication: PSORIASIS
     Dosage: DAY 1
     Route: 058
     Dates: start: 20161209, end: 20161209

REACTIONS (22)
  - Paraesthesia [Recovered/Resolved]
  - Ear infection [Unknown]
  - Nasopharyngitis [Recovered/Resolved]
  - Helplessness [Unknown]
  - Emotional distress [Recovered/Resolved]
  - Swelling face [Recovered/Resolved]
  - Emotional distress [Unknown]
  - Arthralgia [Unknown]
  - Paraesthesia [Recovered/Resolved]
  - Skin irritation [Recovered/Resolved]
  - Pain [Recovering/Resolving]
  - Aphasia [Recovered/Resolved]
  - Dysphemia [Recovered/Resolved]
  - Injection site bruising [Recovered/Resolved]
  - Skin mass [Recovered/Resolved]
  - Impaired quality of life [Recovered/Resolved]
  - Frustration tolerance decreased [Recovered/Resolved]
  - General physical condition abnormal [Unknown]
  - Psoriasis [Not Recovered/Not Resolved]
  - Herpes zoster [Recovered/Resolved]
  - Pruritus [Recovering/Resolving]
  - Headache [Unknown]

NARRATIVE: CASE EVENT DATE: 201612
